FAERS Safety Report 13736331 (Version 1)
Quarter: 2017Q3

REPORT INFORMATION
  Report Type: Not Available
  Country: BE (occurrence: BE)
  Receive Date: 20170710
  Receipt Date: 20170710
  Transmission Date: 20171127
  Serious: Yes (Other)
  Sender: FDA-Public Use
  Company Number: BE-ANIPHARMA-2017-BE-000006

PATIENT
  Age: 77 Year
  Sex: Male

DRUGS (2)
  1. FLECAINIDE ACETATE (NON-SPECIFIC) [Suspect]
     Active Substance: FLECAINIDE ACETATE
  2. OMEPRAZOLE. [Suspect]
     Active Substance: OMEPRAZOLE

REACTIONS (1)
  - Systemic lupus erythematosus [Unknown]
